FAERS Safety Report 18509292 (Version 1)
Quarter: 2020Q4

REPORT INFORMATION
  Report Type: Spontaneous
  Country: DE (occurrence: DE)
  Receive Date: 20201117
  Receipt Date: 20201117
  Transmission Date: 20210114
  Serious: Yes (Other)
  Sender: FDA-Public Use
  Company Number: DE-TEVA-2020-DE-1848571

PATIENT
  Age: 62 Year
  Sex: Female

DRUGS (6)
  1. IBUPROFEN 600 [Concomitant]
     Active Substance: IBUPROFEN
  2. VITAMIN C [Concomitant]
     Active Substance: ASCORBIC ACID
  3. CLINDAMYCIN. [Suspect]
     Active Substance: CLINDAMYCIN
     Indication: JAW OPERATION
     Dosage: 1200 MILLIGRAM DAILY;
     Route: 065
  4. VITAMIN K2 [Concomitant]
     Active Substance: MENAQUINONE 6
  5. MAGNESIUM [Concomitant]
     Active Substance: MAGNESIUM
  6. VITAMIN D3 [Concomitant]
     Active Substance: CHOLECALCIFEROL

REACTIONS (2)
  - Clostridial infection [Recovered/Resolved]
  - Gastroenteritis [Recovered/Resolved]

NARRATIVE: CASE EVENT DATE: 202004
